APPROVED DRUG PRODUCT: ULTRATAG
Active Ingredient: TECHNETIUM TC-99M RED BLOOD CELL KIT
Strength: N/A
Dosage Form/Route: INJECTABLE;INJECTION
Application: N019981 | Product #001
Applicant: CURIUM US LLC
Approved: Jun 10, 1991 | RLD: Yes | RS: Yes | Type: RX